FAERS Safety Report 10191667 (Version 1)
Quarter: 2014Q2

REPORT INFORMATION
  Report Type: Spontaneous
  Country: US (occurrence: None)
  Receive Date: 20140522
  Receipt Date: 20140522
  Transmission Date: 20141212
  Serious: Yes (Hospitalization)
  Sender: FDA-Public Use
  Company Number: None

PATIENT
  Age: 17 Year
  Sex: Male

DRUGS (2)
  1. PULMOZYME [Suspect]
     Indication: CHRONIC RESPIRATORY DISEASE
     Dosage: 2.5 MG, DAILY, NEBULIZER
  2. STEROID PILLS [Concomitant]

REACTIONS (1)
  - Drug dose omission [None]
